FAERS Safety Report 6554057-2 (Version None)
Quarter: 2010Q1

REPORT INFORMATION
  Report Type: 
  Country: None (occurrence: None)
  Receive Date: 20100125
  Receipt Date: 20100125
  Transmission Date: 20100710
  Serious: Yes (Other)
  Sender: FDA-Public Use
  Company Number: None

PATIENT
  Age: 54 Year
  Sex: Female
  Weight: 56.246 kg

DRUGS (2)
  1. TOPIRAMATE [Suspect]
     Indication: MIGRAINE PROPHYLAXIS
     Dosage: 50 MG 1/DAY; 2/DAY 1WK PO
     Route: 048
     Dates: start: 20090920, end: 20091118
  2. TOPAMAX [Concomitant]

REACTIONS (2)
  - HEADACHE [None]
  - PRODUCT SUBSTITUTION ISSUE [None]
